FAERS Safety Report 10032707 (Version 2)
Quarter: 2014Q2

REPORT INFORMATION
  Report Type: Spontaneous
  Country: JP (occurrence: JP)
  Receive Date: 20140324
  Receipt Date: 20140617
  Transmission Date: 20141212
  Serious: Yes (Other)
  Sender: FDA-Public Use
  Company Number: JP-GLAXOSMITHKLINE-B0978415A

PATIENT
  Age: 4 Decade
  Sex: Male

DRUGS (1)
  1. LAMICTAL [Suspect]
     Indication: BIPOLAR DISORDER
     Route: 048
     Dates: end: 20140316

REACTIONS (4)
  - Skin disorder [Recovered/Resolved]
  - Haemorrhage subcutaneous [Unknown]
  - Pruritus [Unknown]
  - Feeling hot [Unknown]
